FAERS Safety Report 17054006 (Version 3)
Quarter: 2020Q3

REPORT INFORMATION
  Report Type: Spontaneous
  Country: CA (occurrence: CA)
  Receive Date: 20191120
  Receipt Date: 20200814
  Transmission Date: 20201102
  Serious: Yes (Hospitalization, Other)
  Sender: FDA-Public Use
  Company Number: CA-PFIZER INC-2019122310

PATIENT
  Age: 39 Year
  Sex: Female
  Weight: 57.9 kg

DRUGS (4)
  1. XELJANZ [Suspect]
     Active Substance: TOFACITINIB CITRATE
     Dosage: 5 MG, 2X/DAY
     Route: 048
  2. XELJANZ [Suspect]
     Active Substance: TOFACITINIB CITRATE
     Dosage: 5 MG, 2X/DAY
     Route: 048
     Dates: start: 2019, end: 201905
  3. AZATHIOPRINE. [Concomitant]
     Active Substance: AZATHIOPRINE
     Dosage: 100 MG, DAILY
     Route: 048
  4. XELJANZ [Suspect]
     Active Substance: TOFACITINIB CITRATE
     Indication: RHEUMATOID ARTHRITIS
     Dosage: 5 MG, 2X/DAY
     Route: 048
     Dates: start: 20170404, end: 2019

REACTIONS (9)
  - Disease recurrence [Recovered/Resolved]
  - Infection [Recovering/Resolving]
  - Escherichia bacteraemia [Recovering/Resolving]
  - Neutropenia [Recovered/Resolved]
  - C-reactive protein increased [Unknown]
  - Renal abscess [Recovering/Resolving]
  - Pyrexia [Recovering/Resolving]
  - Acute kidney injury [Recovering/Resolving]
  - Swelling [Unknown]

NARRATIVE: CASE EVENT DATE: 2019
